FAERS Safety Report 7963860-3 (Version None)
Quarter: 2011Q4

REPORT INFORMATION
  Report Type: 
  Country: None (occurrence: None)
  Receive Date: 20111208
  Receipt Date: 20111125
  Transmission Date: 20120403
  Serious: Yes (Hospitalization)
  Sender: FDA-Public Use
  Company Number: US-BAYER-2011-056044

PATIENT
  Age: 38 Year
  Sex: Female
  Weight: 47.619 kg

DRUGS (10)
  1. AZITHROMYCIN [Concomitant]
     Dosage: 250 MG, UNK
  2. YASMIN [Suspect]
     Dosage: UNK
     Dates: start: 20060501, end: 20080301
  3. SERTRALINE HYDROCHLORIDE [Concomitant]
     Dosage: UNK
     Dates: start: 20061001, end: 20080401
  4. YAZ [Suspect]
     Dosage: UNK
     Dates: start: 20060501, end: 20080301
  5. UNCODEABLE ^UNCLASSIFIABLE^ [Concomitant]
     Dosage: UNK
     Dates: start: 19950101
  6. UNCODEABLE ^UNCLASSIFIABLE^ [Concomitant]
     Dosage: UNK
     Dates: start: 19730101
  7. ZOLOFT [Concomitant]
     Route: 048
  8. MICROGESTIN FE 1.5/30 [Concomitant]
  9. WELLBUTRIN [Concomitant]
     Dosage: 150 MG, BID
     Route: 048
  10. AUGMENTIN [Concomitant]
     Dosage: 875 MG, BID
     Route: 048

REACTIONS (3)
  - PAIN [None]
  - TRANSIENT ISCHAEMIC ATTACK [None]
  - CEREBROVASCULAR ACCIDENT [None]
